FAERS Safety Report 6037709-2 (Version None)
Quarter: 2009Q1

REPORT INFORMATION
  Report Type: 
  Country: None (occurrence: None)
  Receive Date: 20090113
  Receipt Date: 20090105
  Transmission Date: 20090719
  Serious: Yes (Hospitalization)
  Sender: FDA-Public Use
  Company Number: MEDI-0007445

PATIENT
  Age: 10 Month
  Sex: Female

DRUGS (3)
  1. SYNAGIS [Suspect]
     Dosage: 15 MG/KG, INTRAMUSCULAR
     Route: 030
     Dates: start: 20080901, end: 20080901
  2. SYNAGIS [Suspect]
     Dosage: 15 MG/KG, INTRAMUSCULAR
     Route: 030
     Dates: start: 20081016
  3. SYNAGIS [Suspect]
     Dosage: 15 MG/KG, INTRAMUSCULAR
     Route: 030
     Dates: start: 20081202

REACTIONS (1)
  - BRONCHITIS [None]
